FAERS Safety Report 4425669-7 (Version None)
Quarter: 2004Q3

REPORT INFORMATION
  Report Type: 
  Country: None (occurrence: None)
  Receive Date: 20040810
  Receipt Date: 20040726
  Transmission Date: 20050211
  Serious: No
  Sender: FDA-Public Use
  Company Number: 208-2004-0001

PATIENT
  Sex: Female

DRUGS (1)
  1. PHOSLO [Suspect]
     Indication: HYPERPHOSPHATAEMIA

REACTIONS (1)
  - DIARRHOEA [None]
